FAERS Safety Report 21634559 (Version 1)
Quarter: 2022Q4

REPORT INFORMATION
  Report Type: Spontaneous
  Country: JP (occurrence: JP)
  Receive Date: 20221123
  Receipt Date: 20221123
  Transmission Date: 20230112
  Serious: Yes (Other)
  Sender: FDA-Public Use
  Company Number: JP-Eisai-202209774_PRT_P_1

PATIENT
  Age: 68 Year
  Sex: Female

DRUGS (5)
  1. RABEPRAZOLE SODIUM [Suspect]
     Active Substance: RABEPRAZOLE SODIUM
     Indication: Gastritis
     Dosage: DOSE AND FREQUENCY UNKNOWN
     Route: 048
     Dates: start: 2015, end: 20221005
  2. RABEPRAZOLE SODIUM [Suspect]
     Active Substance: RABEPRAZOLE SODIUM
     Route: 048
     Dates: start: 20221006
  3. DAPAGLIFLOZIN [Concomitant]
     Active Substance: DAPAGLIFLOZIN
     Indication: Diabetes mellitus
     Route: 048
     Dates: start: 20221006
  4. LYUMJEV [Concomitant]
     Active Substance: INSULIN LISPRO-AABC
     Indication: Diabetes mellitus
     Route: 058
     Dates: start: 20221006
  5. CALCIUM POLYCARBOPHIL [Concomitant]
     Active Substance: CALCIUM POLYCARBOPHIL
     Indication: Product used for unknown indication
     Route: 048
     Dates: start: 20221006

REACTIONS (1)
  - Abdominal pain [Recovered/Resolved]

NARRATIVE: CASE EVENT DATE: 20221014
